FAERS Safety Report 4868179-5 (Version None)
Quarter: 2005Q4

REPORT INFORMATION
  Report Type: 
  Country: None (occurrence: None)
  Receive Date: 20051227
  Receipt Date: 20051215
  Transmission Date: 20060501
  Serious: Yes (Hospitalization)
  Sender: FDA-Public Use
  Company Number: 2005SP004428

PATIENT
  Age: 21 Month
  Sex: Male
  Weight: 13.1543 kg

DRUGS (4)
  1. XOPENEX [Suspect]
     Indication: NASOPHARYNGITIS
     Dosage: SEE IMAGE
     Route: 055
     Dates: start: 20051001, end: 20051001
  2. XOPENEX [Suspect]
     Indication: WHEEZING
     Dosage: SEE IMAGE
     Route: 055
     Dates: start: 20051001, end: 20051001
  3. XOPENEX [Suspect]
     Indication: NASOPHARYNGITIS
     Dosage: SEE IMAGE
     Route: 055
     Dates: start: 20051201, end: 20051201
  4. XOPENEX [Suspect]
     Indication: WHEEZING
     Dosage: SEE IMAGE
     Route: 055
     Dates: start: 20051201, end: 20051201

REACTIONS (4)
  - NO REACTION ON PREVIOUS EXPOSURE TO DRUG [None]
  - OXYGEN SATURATION DECREASED [None]
  - RASH [None]
  - URTICARIA GENERALISED [None]
